FAERS Safety Report 19685835 (Version 1)
Quarter: 2021Q3

REPORT INFORMATION
  Report Type: Spontaneous
  Country: US (occurrence: US)
  Receive Date: 20210811
  Receipt Date: 20210811
  Transmission Date: 20211014
  Serious: Yes (Other)
  Sender: FDA-Public Use
  Company Number: None

PATIENT
  Age: 76 Year
  Sex: Female
  Weight: 68.85 kg

DRUGS (1)
  1. AMBRISENTAN [Suspect]
     Active Substance: AMBRISENTAN
     Indication: PULMONARY ARTERIAL HYPERTENSION
     Route: 048
     Dates: start: 20210805, end: 20210811

REACTIONS (7)
  - Dysphonia [None]
  - Weight increased [None]
  - Dyspnoea [None]
  - Chest discomfort [None]
  - Oedema peripheral [None]
  - Headache [None]
  - Nausea [None]

NARRATIVE: CASE EVENT DATE: 20210811
